FAERS Safety Report 10041948 (Version 1)
Quarter: 2014Q1

REPORT INFORMATION
  Report Type: Spontaneous
  Country: GB (occurrence: GB)
  Receive Date: 20140327
  Receipt Date: 20140327
  Transmission Date: 20141002
  Serious: Yes (Hospitalization, Disabling)
  Sender: FDA-Public Use
  Company Number: GB-TEVA-471473ISR

PATIENT
  Age: 37 Year
  Sex: Male

DRUGS (4)
  1. METHADONE [Suspect]
     Route: 048
  2. METHADONE [Suspect]
     Route: 048
  3. DIAZEPAM [Suspect]
     Route: 048
  4. FLUOXETINE [Concomitant]
     Route: 065

REACTIONS (11)
  - Toxic encephalopathy [Not Recovered/Not Resolved]
  - Hypoxic-ischaemic encephalopathy [Not Recovered/Not Resolved]
  - Coma scale abnormal [Not Recovered/Not Resolved]
  - Renal impairment [Not Recovered/Not Resolved]
  - Hyperkalaemia [Not Recovered/Not Resolved]
  - Hypoglycaemia [Not Recovered/Not Resolved]
  - Confusional state [Not Recovered/Not Resolved]
  - Paranoia [Not Recovered/Not Resolved]
  - Opisthotonus [Not Recovered/Not Resolved]
  - Pyrexia [Not Recovered/Not Resolved]
  - Convulsion [Not Recovered/Not Resolved]
